FAERS Safety Report 23029392 (Version 4)
Quarter: 2024Q1

REPORT INFORMATION
  Report Type: Spontaneous
  Country: US (occurrence: US)
  Receive Date: 20231004
  Receipt Date: 20240220
  Transmission Date: 20240409
  Serious: Yes (Other)
  Sender: FDA-Public Use
  Company Number: US-PFIZER INC-PV202300162672

PATIENT
  Age: 86 Year
  Sex: Female

DRUGS (2)
  1. IBRANCE [Suspect]
     Active Substance: PALBOCICLIB
     Dosage: 125 MG, CYCLIC (TAKE 1 TAB DAILY DAYS 1-14, OFF FOR 7- REPEAT EVERY 21)
  2. IBRANCE [Suspect]
     Active Substance: PALBOCICLIB
     Dosage: 125 MG, DAILY (1 TAB PO Q 24 HOURS)
     Route: 048

REACTIONS (3)
  - Mental impairment [Unknown]
  - Confusional state [Unknown]
  - Anxiety [Unknown]
